FAERS Safety Report 6483560-9 (Version None)
Quarter: 2009Q4

REPORT INFORMATION
  Report Type: 
  Country: None (occurrence: None)
  Receive Date: 20091208
  Receipt Date: 20091208
  Transmission Date: 20100525
  Serious: Yes (Other)
  Sender: FDA-Public Use
  Company Number: None

PATIENT
  Age: 20 Year
  Sex: Female
  Weight: 49.8957 kg

DRUGS (2)
  1. YAZ [Suspect]
     Indication: CONTRACEPTION
     Dosage: 1 PILL DAILY PO 3-4 MONTHS
     Route: 048
  2. YAZ [Suspect]
     Indication: DYSMENORRHOEA
     Dosage: 1 PILL DAILY PO 3-4 MONTHS
     Route: 048

REACTIONS (3)
  - AFFECT LABILITY [None]
  - CRYING [None]
  - MOOD SWINGS [None]
